FAERS Safety Report 16990924 (Version 1)
Quarter: 2019Q4

REPORT INFORMATION
  Report Type: Spontaneous
  Country: FR (occurrence: FR)
  Receive Date: 20191104
  Receipt Date: 20191104
  Transmission Date: 20200122
  Serious: Yes (Hospitalization)
  Sender: FDA-Public Use
  Company Number: FR-ALLERGAN-1944149US

PATIENT
  Sex: Female
  Weight: 85 kg

DRUGS (14)
  1. SMECTA [Suspect]
     Active Substance: MONTMORILLONITE
     Indication: DIARRHOEA
     Dosage: 3 DF, QD
     Route: 048
     Dates: start: 20190903, end: 20190911
  2. LOVENOX [Concomitant]
     Active Substance: ENOXAPARIN SODIUM
  3. VORTIOXETINE. [Concomitant]
     Active Substance: VORTIOXETINE
  4. TYGACIL [Concomitant]
     Active Substance: TIGECYCLINE
  5. NEBIVOLOL. [Concomitant]
     Active Substance: NEBIVOLOL
  6. PREGABALIN. [Suspect]
     Active Substance: PREGABALIN
     Indication: PRODUCT USED FOR UNKNOWN INDICATION
     Dosage: 2 DF, QD
     Dates: start: 20190730, end: 20190911
  7. ALPRAZOLAM. [Concomitant]
     Active Substance: ALPRAZOLAM
  8. OFLOXACINE [Suspect]
     Active Substance: OFLOXACIN
     Indication: DEVICE RELATED INFECTION
     Dosage: 3 DF, QD
     Route: 048
     Dates: start: 20190816, end: 20190917
  9. STILNOX [Concomitant]
     Active Substance: ZOLPIDEM TARTRATE
  10. ULTRA LEVURE [Concomitant]
     Active Substance: SACCHAROMYCES CEREVISIAE
  11. CEFTAZIDIME;AVIBACTAM - BP [Suspect]
     Active Substance: AVIBACTAM SODIUM\CEFTAZIDIME
     Indication: DEVICE RELATED INFECTION
     Dosage: 1 DF, Q8HR
     Route: 042
     Dates: start: 20190817, end: 20190908
  12. LOPERAMIDE LYOC [Suspect]
     Active Substance: LOPERAMIDE HYDROCHLORIDE
     Indication: DIARRHOEA
     Dosage: 1 DF, PRN
     Route: 048
     Dates: start: 20190904, end: 20190905
  13. DOMPERIDONE ARROW                  /00498201/ [Suspect]
     Active Substance: DOMPERIDONE
     Indication: VOMITING
     Dosage: 1 DF, PRN
     Route: 048
     Dates: start: 20190904, end: 20190904
  14. KARDEGIC [Concomitant]
     Active Substance: ASPIRIN DL-LYSINE

REACTIONS (2)
  - Pruritus [Recovered/Resolved]
  - Erythema [Recovered/Resolved]

NARRATIVE: CASE EVENT DATE: 20190908
